FAERS Safety Report 9871819 (Version 1)
Quarter: 2014Q1

REPORT INFORMATION
  Report Type: Spontaneous
  Country: US (occurrence: US)
  Receive Date: 20140205
  Receipt Date: 20140205
  Transmission Date: 20141002
  Serious: No
  Sender: FDA-Public Use
  Company Number: US-SA-2013SA125257

PATIENT
  Age: 64 Year
  Sex: Female

DRUGS (4)
  1. THYMOGLOBULIN [Suspect]
     Indication: RENAL TRANSPLANT
     Route: 065
     Dates: start: 20131125, end: 20131126
  2. THYMOGLOBULIN [Suspect]
     Indication: RENAL TRANSPLANT
     Route: 065
     Dates: start: 20131127, end: 20131127
  3. THYMOGLOBULIN [Suspect]
     Indication: RENAL TRANSPLANT
     Route: 065
     Dates: start: 20131128, end: 20131128
  4. THYMOGLOBULIN [Suspect]
     Indication: RENAL TRANSPLANT
     Route: 065
     Dates: start: 20131129, end: 20131129

REACTIONS (1)
  - Therapeutic response decreased [Unknown]
